FAERS Safety Report 5733694-9 (Version None)
Quarter: 2008Q2

REPORT INFORMATION
  Report Type: 
  Country: None (occurrence: None)
  Receive Date: 20080509
  Receipt Date: 20080331
  Transmission Date: 20081010
  Serious: No
  Sender: FDA-Public Use
  Company Number: A0718341A

PATIENT
  Age: 83 Year
  Sex: Female

DRUGS (6)
  1. ALTABAX [Suspect]
     Indication: PROPHYLAXIS
     Dosage: 1APP SINGLE DOSE
     Route: 061
     Dates: start: 20080323, end: 20080323
  2. BLOOD PRESSURE MEDICATION [Concomitant]
  3. UNKNOWN MEDICATION [Concomitant]
  4. GABAPENTIN [Concomitant]
  5. VITAMINS [Concomitant]
  6. OXYGEN [Concomitant]

REACTIONS (3)
  - BURNING SENSATION [None]
  - PAIN [None]
  - PARAESTHESIA [None]
